FAERS Safety Report 8245588-8 (Version None)
Quarter: 2012Q1

REPORT INFORMATION
  Report Type: 
  Country: None (occurrence: None)
  Receive Date: 20120330
  Receipt Date: 20120322
  Transmission Date: 20120608
  Serious: Yes (Other)
  Sender: FDA-Public Use
  Company Number: DE-BRISTOL-MYERS SQUIBB COMPANY-16447054

PATIENT
  Age: 72 Year
  Sex: Male

DRUGS (2)
  1. IRBESARTAN [Suspect]
     Indication: HYPERTENSION
     Dosage: DURATION: 3 YRS
     Route: 065
  2. URSO FALK [Concomitant]

REACTIONS (1)
  - CONJUNCTIVAL HAEMORRHAGE [None]
